FAERS Safety Report 5375051-3 (Version None)
Quarter: 2007Q2

REPORT INFORMATION
  Report Type: 
  Country: None (occurrence: None)
  Receive Date: 20070629
  Receipt Date: 20070319
  Transmission Date: 20071010
  Serious: No
  Sender: FDA-Public Use
  Company Number: A0643353A

PATIENT
  Age: 79 Year
  Sex: Male

DRUGS (9)
  1. AVANDARYL [Suspect]
     Dosage: 1TAB TWICE PER DAY
     Route: 048
     Dates: start: 20070309
  2. NORVASC [Concomitant]
  3. IMODIUM [Concomitant]
  4. HYDROCHLOROTHIAZIDE [Concomitant]
  5. ATENOLOL [Concomitant]
  6. FERROUS SULFATE TAB [Concomitant]
  7. ALPRAZOLAM [Concomitant]
  8. WARFARIN SODIUM [Concomitant]
  9. LIPITOR [Concomitant]

REACTIONS (3)
  - BLOOD GLUCOSE INCREASED [None]
  - DRUG INEFFECTIVE [None]
  - OVERDOSE [None]
